FAERS Safety Report 23888525 (Version 1)
Quarter: 2024Q2

REPORT INFORMATION
  Report Type: Spontaneous
  Country: FR (occurrence: FR)
  Receive Date: 20240523
  Receipt Date: 20240523
  Transmission Date: 20240716
  Serious: Yes (Other)
  Sender: FDA-Public Use
  Company Number: None

PATIENT
  Age: 66 Year
  Sex: Male

DRUGS (1)
  1. ZOLPIDEM [Suspect]
     Active Substance: ZOLPIDEM TARTRATE
     Indication: Product used for unknown indication
     Dosage: 20 MILLIGRAM, QD, AT LEAST 2 TABLETS OF 10 MG IN THE EVENING
     Route: 048
     Dates: start: 202303

REACTIONS (1)
  - Drug use disorder [Not Recovered/Not Resolved]
